FAERS Safety Report 12891360 (Version 1)
Quarter: 2016Q4

REPORT INFORMATION
  Report Type: Spontaneous
  Country: US (occurrence: US)
  Receive Date: 20161026
  Receipt Date: 20161026
  Transmission Date: 20170207
  Serious: Yes (Other)
  Sender: FDA-Public Use
  Company Number: None

PATIENT
  Age: 54 Year
  Sex: Male
  Weight: 82.56 kg

DRUGS (6)
  1. OLD SPICE HIGH ENDURANCE PURE SPORT (ALUMINUM ZIRCONIUM TRICHLOROHYDREX GLY) [Suspect]
     Active Substance: ALUMINUM ZIRCONIUM TRICHLOROHYDREX GLY
     Dosage: 1 APPLICATION 1 ONLY TOPICAL
     Route: 061
     Dates: start: 20160808, end: 20160808
  2. ALLEGRA [Concomitant]
     Active Substance: FEXOFENADINE HYDROCHLORIDE
  3. AMLODIPINE BESYLATE. [Concomitant]
     Active Substance: AMLODIPINE BESYLATE
  4. NORVASC [Concomitant]
     Active Substance: AMLODIPINE BESYLATE
  5. SIMVASTATIN. [Concomitant]
     Active Substance: SIMVASTATIN
  6. OLD SPICE MALE HAIR SYLING BASE [Suspect]
     Active Substance: COSMETICS
     Dosage: 1 APPLICATION 1 ONLY TOPICAL
     Route: 061
     Dates: start: 20160808, end: 20160808

REACTIONS (7)
  - Swollen tongue [None]
  - Tongue discolouration [None]
  - Pharyngeal hypoaesthesia [None]
  - Dysgeusia [None]
  - Hypersensitivity [None]
  - Hypoaesthesia oral [None]
  - Product difficult to remove [None]

NARRATIVE: CASE EVENT DATE: 20160808
